FAERS Safety Report 7680802-9 (Version None)
Quarter: 2011Q3

REPORT INFORMATION
  Report Type: 
  Country: None (occurrence: None)
  Receive Date: 20110812
  Receipt Date: 20110809
  Transmission Date: 20111222
  Serious: Yes (Other)
  Sender: FDA-Public Use
  Company Number: GB-MERCK-1108GBR00061

PATIENT
  Age: 27 Year
  Sex: Male

DRUGS (6)
  1. ACETALOZAMIDE [Suspect]
     Indication: ANTERIOR CHAMBER DISORDER
     Route: 065
  2. TIMOLOL MALEATE [Suspect]
     Indication: INTRAOCULAR PRESSURE INCREASED
     Route: 047
  3. ATROPINE [Suspect]
     Indication: ANTERIOR CHAMBER DISORDER
     Route: 065
  4. TRUSOPT [Suspect]
     Indication: INTRAOCULAR PRESSURE INCREASED
     Route: 047
  5. LATANOPROST [Suspect]
     Indication: INTRAOCULAR PRESSURE INCREASED
     Route: 065
  6. PILOCARPINE [Suspect]
     Indication: INTRAOCULAR PRESSURE INCREASED
     Route: 065

REACTIONS (4)
  - ANTERIOR CHAMBER DISORDER [None]
  - VISUAL ACUITY TESTS ABNORMAL [None]
  - INTRAOCULAR PRESSURE INCREASED [None]
  - DRUG INEFFECTIVE [None]
